FAERS Safety Report 19720816 (Version 2)
Quarter: 2021Q3

REPORT INFORMATION
  Report Type: Spontaneous
  Country: US (occurrence: US)
  Receive Date: 20210818
  Receipt Date: 20210910
  Transmission Date: 20211014
  Serious: Yes (Other)
  Sender: FDA-Public Use
  Company Number: US-MALLINCKRODT PHARMACEUTICALS-T202102062

PATIENT
  Age: 54 Year
  Sex: Male
  Weight: 142 kg

DRUGS (4)
  1. H.P. ACTHAR [Suspect]
     Active Substance: CORTICOTROPIN
     Indication: NEPHROTIC SYNDROME
     Dosage: 80 UNITS (1ML) TWO TIMES A WEEK
     Route: 058
     Dates: start: 202008, end: 2020
  2. H.P. ACTHAR [Suspect]
     Active Substance: CORTICOTROPIN
     Indication: FOCAL SEGMENTAL GLOMERULOSCLEROSIS
     Dosage: 80 UNITS, TWO TIMES A WEEK
     Route: 058
     Dates: start: 20200912, end: 2021
  3. H.P. ACTHAR [Suspect]
     Active Substance: CORTICOTROPIN
     Dosage: UNK
     Route: 058
     Dates: start: 202105, end: 2021
  4. H.P. ACTHAR [Suspect]
     Active Substance: CORTICOTROPIN
     Dosage: 1 MILLILITER (80 UNITS), TWICE A WEEK
     Route: 058
     Dates: start: 2021

REACTIONS (8)
  - Wrong technique in product usage process [Not Recovered/Not Resolved]
  - Cataract operation [Unknown]
  - Diarrhoea [Unknown]
  - Swelling [Unknown]
  - Lack of injection site rotation [Recovered/Resolved]
  - Cataract [Unknown]
  - Faeces discoloured [Unknown]
  - Injection site pain [Not Recovered/Not Resolved]

NARRATIVE: CASE EVENT DATE: 202104
